FAERS Safety Report 15259798 (Version 1)
Quarter: 2018Q3

REPORT INFORMATION
  Report Type: Spontaneous
  Country: US (occurrence: US)
  Receive Date: 20180719
  Receipt Date: 20180719
  Transmission Date: 20181010
  Serious: Yes (Hospitalization)
  Sender: FDA-Public Use
  Company Number: None

PATIENT
  Age: 63 Year
  Sex: Male
  Weight: 89.4 kg

DRUGS (1)
  1. XELODA [Suspect]
     Active Substance: CAPECITABINE
     Dates: end: 20180215

REACTIONS (11)
  - Nausea [None]
  - Chromaturia [None]
  - Blood potassium decreased [None]
  - Abdominal pain [None]
  - Vomiting [None]
  - Hypophagia [None]
  - Dehydration [None]
  - Blood lactic acid increased [None]
  - Gastrointestinal stoma output increased [None]
  - Fluid intake reduced [None]
  - Abdominal distension [None]

NARRATIVE: CASE EVENT DATE: 20180413
